FAERS Safety Report 5505271-6 (Version None)
Quarter: 2007Q4

REPORT INFORMATION
  Report Type: 
  Country: None (occurrence: None)
  Receive Date: 20071102
  Receipt Date: 20071031
  Transmission Date: 20080405
  Serious: Yes (Other)
  Sender: FDA-Public Use
  Company Number: CA-JNJFOC-20071005318

PATIENT
  Age: 58 Year
  Sex: Female

DRUGS (3)
  1. SPORANOX [Suspect]
     Indication: DRUG USE FOR UNKNOWN INDICATION
     Dosage: 2  TIMES 100MG TABLETS TAKEN TWICE A DAY FOR TWO MONTHS
     Route: 065
  2. SEROQUEL [Concomitant]
     Route: 065
  3. CELEXA [Concomitant]
     Route: 065

REACTIONS (1)
  - HALLUCINATION, AUDITORY [None]
